FAERS Safety Report 20607741 (Version 2)
Quarter: 2022Q2

REPORT INFORMATION
  Report Type: Report from Study
  Country: DE (occurrence: None)
  Receive Date: 20220317
  Receipt Date: 20220430
  Transmission Date: 20220721
  Serious: Yes (Hospitalization)
  Sender: FDA-Public Use
  Company Number: DE-ROCHE-3045685

PATIENT
  Age: 36 Year
  Sex: Female
  Weight: 50 kg

DRUGS (17)
  1. ATEZOLIZUMAB [Suspect]
     Active Substance: ATEZOLIZUMAB
     Indication: Triple negative breast cancer
     Dosage: DATE OF MOST RECENT DOSE OF ATEZOLIZUMAB PRIOR TO ONSET OF SAE: 31/JAN/2022
     Route: 041
     Dates: start: 20211028
  2. PACLITAXEL [Suspect]
     Active Substance: PACLITAXEL
     Indication: Triple negative breast cancer
     Dosage: DATE OF MOST RECENT DOSE OF PACLITAXEL PRIOR TO ONSET OF SAE: 24/JAN/2022
     Route: 042
     Dates: start: 20211028
  3. CARBOPLATIN [Suspect]
     Active Substance: CARBOPLATIN
     Indication: Triple negative breast cancer
     Dosage: DATE OF MOST RECENT DOSE OF CARBOPLATIN PRIOR TO ONSET OF SAE: 24/JAN/2022
     Route: 042
     Dates: start: 20211028
  4. EPIRUBICIN [Suspect]
     Active Substance: EPIRUBICIN
     Indication: Triple negative breast cancer
     Dosage: DATE OF MOST RECENT DOSE OF EPIRUBICIN PRIOR TO ONSET OF SAE: 31/JAN/2022
     Route: 042
     Dates: start: 20220131
  5. CYCLOPHOSPHAMIDE [Suspect]
     Active Substance: CYCLOPHOSPHAMIDE
     Indication: Triple negative breast cancer
     Dosage: DATE OF MOST RECENT DOSE OF CYCLOPHOSHAMIDE PRIOR TO ONSET OF SAE: 31/JAN/2022
     Route: 042
     Dates: start: 20220131
  6. CETROTIDE [Concomitant]
     Active Substance: CETRORELIX ACETATE
     Dates: start: 20211026
  7. ENANTONE LP [Concomitant]
     Active Substance: LEUPROLIDE ACETATE
     Dates: start: 20211026
  8. FLOHSAMEN [Concomitant]
     Dates: start: 20211107
  9. ALDIAMED [Concomitant]
     Dates: start: 20220105
  10. FILGRASTIM [Concomitant]
     Active Substance: FILGRASTIM
     Dosage: 30MIO IE OTHER
     Dates: start: 20211221, end: 20220210
  11. ZOLADEX [Concomitant]
     Active Substance: GOSERELIN ACETATE
     Dates: start: 20220121, end: 20220121
  12. PANTOPRAZOLE SODIUM [Concomitant]
     Active Substance: PANTOPRAZOLE SODIUM
     Dates: start: 20190101
  13. ZOFRAN [Concomitant]
     Active Substance: ONDANSETRON HYDROCHLORIDE
     Dosage: OTHER
     Dates: start: 20191028, end: 20210131
  14. DEXAMETHASONE [Concomitant]
     Active Substance: DEXAMETHASONE
     Dates: start: 20191028, end: 20211125
  15. DEXAMETHASONE [Concomitant]
     Active Substance: DEXAMETHASONE
     Dates: start: 20211202, end: 20220131
  16. DIMETHINDENE [Concomitant]
     Active Substance: DIMETHINDENE
     Dates: start: 20191028, end: 20220124
  17. APREPITANT [Concomitant]
     Active Substance: APREPITANT
     Dosage: 125/80 MG
     Dates: start: 20220131, end: 20220131

REACTIONS (1)
  - General physical health deterioration [Recovered/Resolved]

NARRATIVE: CASE EVENT DATE: 20220201
